FAERS Safety Report 4691421-0 (Version None)
Quarter: 2005Q2

REPORT INFORMATION
  Report Type: 
  Country: None (occurrence: None)
  Receive Date: 20050615
  Receipt Date: 20050603
  Transmission Date: 20051028
  Serious: Yes (Other)
  Sender: FDA-Public Use
  Company Number: KII-2005-0016870

PATIENT
  Age: 63 Year
  Sex: Female

DRUGS (4)
  1. OXYCONTIN [Suspect]
     Dosage: HS, ORAL
     Route: 048
     Dates: start: 20050505
  2. FLEXERIL [Suspect]
     Dosage: SEE TEXT, ORAL
     Route: 048
  3. AMITRIPTYLINE (AMITRIPTYLINE) [Suspect]
     Dosage: SEE TEXT, ORAL
     Route: 048
     Dates: start: 20050504
  4. BACLOFEN [Suspect]
     Dosage: DAILY, ORAL
     Route: 048
     Dates: start: 20050504

REACTIONS (9)
  - ABNORMAL BEHAVIOUR [None]
  - ANGER [None]
  - CEREBRAL ISCHAEMIA [None]
  - CONFUSIONAL STATE [None]
  - DRUG INEFFECTIVE [None]
  - HOSTILITY [None]
  - HYPERTENSION [None]
  - SOMNOLENCE [None]
  - THINKING ABNORMAL [None]
